FAERS Safety Report 12078688 (Version 1)
Quarter: 2016Q1

REPORT INFORMATION
  Report Type: Spontaneous
  Country: FR (occurrence: FR)
  Receive Date: 20160216
  Receipt Date: 20160216
  Transmission Date: 20160526
  Serious: Yes (Hospitalization)
  Sender: FDA-Public Use
  Company Number: FR-ACCORD-037942

PATIENT
  Age: 16 Year
  Sex: Male

DRUGS (6)
  1. PLITICAN [Interacting]
     Active Substance: ALIZAPRIDE HYDROCHLORIDE
     Indication: PREMEDICATION
  2. ZOPHREN [Interacting]
     Active Substance: ONDANSETRON
     Indication: PREMEDICATION
  3. SOLU-MEDROL [Interacting]
     Active Substance: METHYLPREDNISOLONE SODIUM SUCCINATE
     Indication: PREMEDICATION
  4. FLUOROURACIL ACCORD [Interacting]
     Active Substance: FLUOROURACIL
     Indication: NASOPHARYNGEAL CANCER
     Route: 042
     Dates: start: 20151210
  5. EMEND [Interacting]
     Active Substance: APREPITANT
     Indication: PREMEDICATION
  6. CISPLATIN ACCORD [Suspect]
     Active Substance: CISPLATIN
     Indication: NASOPHARYNGEAL CANCER
     Route: 042
     Dates: start: 20151209

REACTIONS (9)
  - Sepsis [Unknown]
  - Hyponatraemia [Recovered/Resolved]
  - Blood urea increased [Unknown]
  - Drug interaction [Unknown]
  - Inappropriate antidiuretic hormone secretion [Unknown]
  - Hyperammonaemic encephalopathy [Recovered/Resolved]
  - Hypochloraemia [Unknown]
  - Off label use [Unknown]
  - Hyperammonaemia [Not Recovered/Not Resolved]

NARRATIVE: CASE EVENT DATE: 20151214
